FAERS Safety Report 8132461-9 (Version None)
Quarter: 2012Q1

REPORT INFORMATION
  Report Type: 
  Country: None (occurrence: None)
  Receive Date: 20120213
  Receipt Date: 20120207
  Transmission Date: 20120608
  Serious: Yes (Hospitalization)
  Sender: FDA-Public Use
  Company Number: JP-PFIZER INC-2011310554

PATIENT
  Age: 68 Year
  Sex: Female

DRUGS (4)
  1. FUROSEMIDE [Concomitant]
     Dosage: UNK
     Dates: start: 20110301
  2. AMIODARONE HYDROCHLORIDE [Suspect]
     Indication: HYPERTROPHIC CARDIOMYOPATHY
     Dosage: 200 MG, 1X/DAY
     Route: 048
  3. SPIRONOLACTONE [Concomitant]
     Dosage: UNK
  4. TOLVAPTAN [Concomitant]

REACTIONS (2)
  - DRUG LEVEL INCREASED [None]
  - HEPATOTOXICITY [None]
